FAERS Safety Report 19508663 (Version 2)
Quarter: 2021Q3

REPORT INFORMATION
  Report Type: Spontaneous
  Country: NL (occurrence: NL)
  Receive Date: 20210708
  Receipt Date: 20210709
  Transmission Date: 20211014
  Serious: Yes (Death, Hospitalization, Other)
  Sender: FDA-Public Use
  Company Number: NL-PFIZER INC-2021778706

PATIENT
  Age: 72 Year
  Sex: Male

DRUGS (4)
  1. PACLITAXEL. [Suspect]
     Active Substance: PACLITAXEL
     Dosage: UNK
     Dates: start: 20200429
  2. KEYTRUDA [Suspect]
     Active Substance: PEMBROLIZUMAB
     Indication: NON-SMALL CELL LUNG CANCER STAGE IV
     Dosage: 200 MG, EVERY 3 WEEKS
     Route: 042
     Dates: start: 20200416
  3. CARBOPLATIN. [Suspect]
     Active Substance: CARBOPLATIN
     Dosage: AREA UNDER THE CURVE (AUC) 5
     Dates: start: 20200416
  4. PACLITAXEL. [Suspect]
     Active Substance: PACLITAXEL
     Dosage: 200 MG/M2
     Dates: start: 20210416

REACTIONS (3)
  - Toxic epidermal necrolysis [Fatal]
  - Neoplasm progression [Fatal]
  - Stevens-Johnson syndrome [Fatal]

NARRATIVE: CASE EVENT DATE: 202006
